FAERS Safety Report 7818530-9 (Version None)
Quarter: 2011Q4

REPORT INFORMATION
  Report Type: 
  Country: None (occurrence: None)
  Receive Date: 20111017
  Receipt Date: 20111013
  Transmission Date: 20120403
  Serious: Yes (Other)
  Sender: FDA-Public Use
  Company Number: CH-ROCHE-1004610

PATIENT
  Age: 44 Year
  Sex: Female
  Weight: 87.5 kg

DRUGS (9)
  1. LEVOTHYROXINE SODIUM [Concomitant]
  2. ARAVA [Suspect]
     Indication: RHEUMATOID ARTHRITIS
     Route: 048
     Dates: start: 20080101
  3. ATORVASTATIN CALCIUM [Concomitant]
  4. ACETAMINOPHEN [Concomitant]
  5. FLUOXETINE HYDROCHLORIDE [Concomitant]
  6. COZAAR [Concomitant]
  7. HUMALOG [Concomitant]
  8. ACTEMRA [Suspect]
     Indication: RHEUMATOID ARTHRITIS
     Route: 041
     Dates: start: 20090508
  9. LEVEMIR [Concomitant]

REACTIONS (4)
  - HYPOMAGNESAEMIA [None]
  - HYPOPHOSPHATAEMIA [None]
  - RENAL FAILURE CHRONIC [None]
  - RENAL TUBULAR DISORDER [None]
